FAERS Safety Report 5380144-0 (Version None)
Quarter: 2007Q3

REPORT INFORMATION
  Report Type: 
  Country: None (occurrence: None)
  Receive Date: 20070706
  Receipt Date: 20070430
  Transmission Date: 20080115
  Serious: No
  Sender: FDA-Public Use
  Company Number: A0649305A

PATIENT
  Age: 52 Year
  Sex: Female

DRUGS (3)
  1. TYKERB [Suspect]
     Indication: BREAST CANCER
     Dosage: 5TAB PER DAY
     Route: 048
     Dates: start: 20070411
  2. HERCEPTIN [Concomitant]
  3. ZOMETA [Concomitant]

REACTIONS (3)
  - ACNE [None]
  - BURNING SENSATION [None]
  - PRURITUS [None]
